FAERS Safety Report 19432415 (Version 2)
Quarter: 2021Q3

REPORT INFORMATION
  Report Type: Spontaneous
  Country: US (occurrence: US)
  Receive Date: 20210618
  Receipt Date: 20210928
  Transmission Date: 20211014
  Serious: No
  Sender: FDA-Public Use
  Company Number: US-SA-2021SA201225

PATIENT
  Age: 53 Year
  Sex: Male

DRUGS (6)
  1. TRIAMCINOLON [TRIAMCINOLONE ACETONIDE] [Concomitant]
     Indication: DERMATITIS ATOPIC
  2. PROCHLORPERAZINE. [Concomitant]
     Active Substance: PROCHLORPERAZINE
  3. ONDANSETRON [Concomitant]
     Active Substance: ONDANSETRON
  4. DUPIXENT [Suspect]
     Active Substance: DUPILUMAB
     Indication: DERMATITIS ATOPIC
     Dosage: 300 MG/2ML, QOW
     Route: 058
     Dates: start: 20210423
  5. TACROLIMUS. [Concomitant]
     Active Substance: TACROLIMUS
     Indication: DERMATITIS ATOPIC
     Dosage: UNKNOWN
  6. AMLODIPINE [Concomitant]
     Active Substance: AMLODIPINE BESYLATE

REACTIONS (1)
  - No adverse event [Unknown]

NARRATIVE: CASE EVENT DATE: 2021
